FAERS Safety Report 8239657-6 (Version None)
Quarter: 2012Q1

REPORT INFORMATION
  Report Type: 
  Country: None (occurrence: None)
  Receive Date: 20120328
  Receipt Date: 20120319
  Transmission Date: 20120608
  Serious: Yes (Hospitalization)
  Sender: FDA-Public Use
  Company Number: CH-UCBSA-053746

PATIENT
  Age: 71 Year
  Sex: Male
  Weight: 75 kg

DRUGS (16)
  1. NEUPRO [Suspect]
     Route: 062
     Dates: start: 20080920, end: 20080928
  2. MADOPAR [Concomitant]
     Indication: PARKINSON'S DISEASE
     Dates: start: 20091109, end: 20120223
  3. PANTOPRAZOLE [Concomitant]
     Dates: start: 20110614
  4. MADOPAR [Concomitant]
     Dates: start: 20120223
  5. IRBESARTAN [Concomitant]
     Indication: HYPERTENSION
  6. NEUPRO [Suspect]
     Route: 062
     Dates: start: 20080912, end: 20080919
  7. PANTOPRAZOLE [Concomitant]
     Indication: GASTROOESOPHAGEAL REFLUX DISEASE
     Dates: end: 20110617
  8. NEPHROTRANS [Concomitant]
     Indication: RENAL FAILURE
  9. CALCIMAGON D3 [Concomitant]
     Indication: MULTIPLE MYELOMA
     Dates: start: 20080101
  10. ACIDUM FOLICUM [Concomitant]
     Indication: MULTIPLE MYELOMA
     Dates: start: 20080101
  11. NEUPRO [Suspect]
     Indication: PARKINSON'S DISEASE
     Route: 062
     Dates: start: 20100308, end: 20120223
  12. NEUPRO [Suspect]
     Route: 062
     Dates: start: 20100223, end: 20100307
  13. NEUPRO [Suspect]
     Route: 062
     Dates: start: 20080929, end: 20090504
  14. NEUPRO [Suspect]
     Route: 062
     Dates: start: 20090513, end: 20100222
  15. NEUPRO [Suspect]
     Route: 062
     Dates: start: 20090505, end: 20090512
  16. NEUPRO [Suspect]
     Route: 062
     Dates: start: 20080904, end: 20080911

REACTIONS (1)
  - GENERAL PHYSICAL HEALTH DETERIORATION [None]
